FAERS Safety Report 9087057 (Version 1)
Quarter: 2013Q1

REPORT INFORMATION
  Report Type: Spontaneous
  Country: US (occurrence: US)
  Receive Date: 20130131
  Receipt Date: 20130131
  Transmission Date: 20140127
  Serious: Yes (Other)
  Sender: FDA-Public Use
  Company Number: US-PFIZER INC-2013038375

PATIENT
  Sex: Female

DRUGS (1)
  1. NEURONTIN [Suspect]
     Indication: MIGRAINE
     Dosage: 800 MG, 5 TIMES A DAY

REACTIONS (2)
  - Convulsion [Unknown]
  - Impaired work ability [Unknown]
